FAERS Safety Report 11362999 (Version 1)
Quarter: 2015Q3

REPORT INFORMATION
  Report Type: Spontaneous
  Country: US (occurrence: None)
  Receive Date: 20150807
  Receipt Date: 20150807
  Transmission Date: 20151125
  Serious: Yes (Life-Threatening, Hospitalization)
  Sender: FDA-Public Use
  Company Number: None

PATIENT
  Age: 34 Year
  Sex: Male
  Weight: 63 kg

DRUGS (2)
  1. EFAVIRENZ/EMTRICITABINE/TENOFOVIR DF [Suspect]
     Active Substance: EFAVIRENZ\EMTRICITABINE\TENOFOVIR DISOPROXIL FUMARATE
     Indication: HIV INFECTION
     Dosage: 600/200/300 MG
     Route: 048
     Dates: start: 20150305, end: 20150713
  2. PACLITAXEL INJECTION [Suspect]
     Active Substance: PACLITAXEL
     Indication: ACQUIRED IMMUNODEFICIENCY SYNDROME
     Dosage: 100 MG, EVERY 3 WEEKS
     Route: 042
     Dates: start: 20150305, end: 20150528

REACTIONS (2)
  - Neutropenic sepsis [None]
  - Toxicity to various agents [None]

NARRATIVE: CASE EVENT DATE: 20150714
